FAERS Safety Report 7882004-X (Version None)
Quarter: 2011Q4

REPORT INFORMATION
  Report Type: 
  Country: None (occurrence: None)
  Receive Date: 20111101
  Receipt Date: 20110607
  Transmission Date: 20120403
  Serious: No
  Sender: FDA-Public Use
  Company Number: US-AMGEN-USASP2011013323

PATIENT
  Age: 53 Year
  Sex: Male
  Weight: 107.94 kg

DRUGS (2)
  1. ENBREL [Suspect]
     Indication: SPONDYLOARTHROPATHY
  2. ENBREL [Suspect]
     Indication: RHEUMATOID ARTHRITIS
     Dosage: 50 MG, QWK
     Dates: start: 20100901, end: 20110306

REACTIONS (7)
  - CHILLS [None]
  - RASH [None]
  - BRONCHITIS [None]
  - COUGH [None]
  - UPPER RESPIRATORY TRACT CONGESTION [None]
  - PYREXIA [None]
  - RHINORRHOEA [None]
